FAERS Safety Report 7530813-9 (Version None)
Quarter: 2011Q2

REPORT INFORMATION
  Report Type: 
  Country: None (occurrence: None)
  Receive Date: 20110607
  Receipt Date: 20110524
  Transmission Date: 20111010
  Serious: Yes (Hospitalization)
  Sender: FDA-Public Use
  Company Number: FR-GENENTECH-319802

PATIENT
  Sex: Female

DRUGS (1)
  1. XOLAIR [Suspect]
     Indication: HYPERSENSITIVITY
     Dosage: 300 MG, UNKNOWN
     Route: 042
     Dates: start: 20110517

REACTIONS (4)
  - MYOSITIS [None]
  - ARTHRALGIA [None]
  - BONE PAIN [None]
  - INCORRECT ROUTE OF DRUG ADMINISTRATION [None]
